FAERS Safety Report 13583078 (Version 1)
Quarter: 2017Q2

REPORT INFORMATION
  Report Type: Spontaneous
  Country: US (occurrence: US)
  Receive Date: 20170525
  Receipt Date: 20170525
  Transmission Date: 20170830
  Serious: Yes (Other)
  Sender: FDA-Public Use
  Company Number: US-BAUSCH-BL-2017-017306

PATIENT
  Age: 72 Year
  Sex: Female

DRUGS (2)
  1. TIMOLOL MALEATE OPHTHALMIC SOLUTION USP 0.5% [Suspect]
     Active Substance: TIMOLOL MALEATE
     Indication: GLAUCOMA
     Dosage: 1 DROP IN BOTH EYES TWICE DAILY
     Route: 047
     Dates: start: 201701, end: 2017
  2. ALPHAGAN P [Concomitant]
     Active Substance: BRIMONIDINE TARTRATE
     Indication: GLAUCOMA
     Route: 047
     Dates: start: 2017

REACTIONS (5)
  - Eye pain [Recovered/Resolved]
  - Photophobia [Recovered/Resolved]
  - Lacrimation increased [Recovered/Resolved]
  - Eye irritation [Recovered/Resolved]
  - Blindness transient [Recovered/Resolved]

NARRATIVE: CASE EVENT DATE: 2017
